FAERS Safety Report 22749620 (Version 2)
Quarter: 2023Q4

REPORT INFORMATION
  Report Type: Spontaneous
  Country: DE (occurrence: DE)
  Receive Date: 20230726
  Receipt Date: 20231013
  Transmission Date: 20240110
  Serious: Yes (Hospitalization, Congenital Anomaly, Other)
  Sender: FDA-Public Use
  Company Number: None

PATIENT
  Sex: Female
  Weight: 1 kg

DRUGS (6)
  1. ESCITALOPRAM [Suspect]
     Active Substance: ESCITALOPRAM OXALATE
     Indication: Product used for unknown indication
     Dosage: UNKNOWN
     Route: 064
  2. ATOSIBAN [Concomitant]
     Active Substance: ATOSIBAN
     Indication: Product used for unknown indication
     Dosage: UNKNOWN
     Route: 064
  3. INDOMETHACIN [Concomitant]
     Active Substance: INDOMETHACIN
     Indication: Product used for unknown indication
     Dosage: UNKNOWN
     Route: 064
  4. LEVOTHYROXINE SODIUM [Concomitant]
     Active Substance: LEVOTHYROXINE SODIUM
     Indication: Product used for unknown indication
     Dosage: UNKNOWN
     Route: 064
  5. GENTAMICIN SULFATE [Concomitant]
     Active Substance: GENTAMICIN SULFATE
     Indication: Product used for unknown indication
     Dosage: UNKNOWN
     Route: 064
  6. CLINDAMYCIN PHOSPHATE [Concomitant]
     Active Substance: CLINDAMYCIN PHOSPHATE
     Indication: Product used for unknown indication
     Dosage: UNKNOWN
     Route: 064

REACTIONS (6)
  - Atrial septal defect [Unknown]
  - Congenital hydrocephalus [Unknown]
  - Foetal exposure during pregnancy [Unknown]
  - Respiratory disorder neonatal [Recovered/Resolved]
  - Foot deformity [Unknown]
  - Meningomyelocele [Unknown]

NARRATIVE: CASE EVENT DATE: 20230201
